FAERS Safety Report 9464865 (Version 2)
Quarter: 2013Q3

REPORT INFORMATION
  Report Type: Spontaneous
  Country: GR (occurrence: GR)
  Receive Date: 20130819
  Receipt Date: 20130917
  Transmission Date: 20140515
  Serious: Yes (Death, Hospitalization)
  Sender: FDA-Public Use
  Company Number: PHHY2013GR088320

PATIENT
  Age: 71 Year
  Sex: Female

DRUGS (5)
  1. PYRIDOSTIGMINE [Suspect]
     Indication: MYASTHENIA GRAVIS
     Dosage: 60 MG, TID
  2. BENZODIAZEPINES [Concomitant]
     Indication: ANXIETY DISORDER
  3. PREDNISOLONE [Concomitant]
     Indication: MYASTHENIA GRAVIS
     Dosage: 10 MG, QD
  4. PREDNISOLONE [Concomitant]
     Dosage: 75 MG, UNK
  5. PREDNISOLONE [Concomitant]
     Dosage: 30 MG, QD

REACTIONS (12)
  - Sudden cardiac death [Fatal]
  - Myocardial infarction [Unknown]
  - Chest pain [Recovered/Resolved]
  - Emotional distress [Unknown]
  - Left ventricular hypertrophy [Unknown]
  - Ventricular hypokinesia [Unknown]
  - Diastolic dysfunction [Unknown]
  - Asthenia [Unknown]
  - Chest discomfort [Unknown]
  - Salivary hypersecretion [Unknown]
  - Diarrhoea [Unknown]
  - Abdominal pain [Unknown]
